FAERS Safety Report 10070419 (Version 1)
Quarter: 2014Q2

REPORT INFORMATION
  Report Type: Spontaneous
  Country: US (occurrence: None)
  Receive Date: 20140409
  Receipt Date: 20140409
  Transmission Date: 20141212
  Serious: No
  Sender: FDA-Public Use
  Company Number: None

PATIENT
  Age: 49 Year
  Sex: Male

DRUGS (2)
  1. MEKINIST 2MG GSK [Suspect]
     Dates: start: 20140220
  2. TAFINLAR [Suspect]
     Route: 048

REACTIONS (3)
  - Nausea [None]
  - Dizziness [None]
  - Confusional state [None]
